FAERS Safety Report 4459204-4 (Version None)
Quarter: 2004Q3

REPORT INFORMATION
  Report Type: 
  Country: None (occurrence: None)
  Receive Date: 20040927
  Receipt Date: 20040916
  Transmission Date: 20050211
  Serious: Yes (Death)
  Sender: FDA-Public Use
  Company Number: CH-BRISTOL-MYERS SQUIBB COMPANY-12705455

PATIENT
  Age: 4 Year
  Sex: Female
  Weight: 17 kg

DRUGS (12)
  1. METHOTREXATE [Suspect]
     Indication: JUVENILE ARTHRITIS
     Dosage: 10 MG/WEEK. (VIAL)
     Route: 058
     Dates: end: 20040804
  2. THALIDOMIDE [Suspect]
     Indication: JUVENILE ARTHRITIS
     Dosage: TABLET
     Route: 048
     Dates: start: 20040623, end: 20040804
  3. AUGMENTIN FORTE [Suspect]
     Indication: URINARY TRACT INFECTION
     Route: 048
     Dates: start: 20040707, end: 20040727
  4. SANDIMMUNE [Suspect]
     Indication: JUVENILE ARTHRITIS
     Dosage: TABLET
     Route: 048
     Dates: end: 20040804
  5. SOLU-MEDROL [Suspect]
     Indication: JUVENILE ARTHRITIS
     Dosage: 1 G/1.73 M2/ 2 WEEKS (VIAL)
     Route: 042
     Dates: start: 20040325, end: 20040728
  6. PROXEN [Concomitant]
     Indication: JUVENILE ARTHRITIS
     Dosage: SYRUP
     Route: 048
     Dates: end: 20040804
  7. NORVASC [Concomitant]
     Indication: HYPERTENSION
     Dosage: TABLET
     Route: 048
     Dates: end: 20040804
  8. LEUCOVORIN CALCIUM [Concomitant]
     Indication: PROPHYLAXIS
     Dates: end: 20040804
  9. CALCIMAGON-D3 [Concomitant]
     Dosage: TABLET.  VITAMIN D 400 UI
     Route: 048
     Dates: end: 20040804
  10. MALTOFER [Concomitant]
     Indication: ANAEMIA
     Dates: end: 20040804
  11. REMICADE [Concomitant]
     Indication: JUVENILE ARTHRITIS
     Dosage: VIAL  (?)
     Dates: start: 20031205, end: 20040614
  12. URODIN [Concomitant]
     Route: 048

REACTIONS (14)
  - BLOOD CREATININE INCREASED [None]
  - BLOOD GLUCOSE DECREASED [None]
  - BLOOD PHOSPHORUS INCREASED [None]
  - C-REACTIVE PROTEIN INCREASED [None]
  - CARDIAC ARREST [None]
  - GASTROENTERITIS [None]
  - HAEMOGLOBIN DECREASED [None]
  - HYPOVENTILATION [None]
  - NEUTROPHIL PERCENTAGE INCREASED [None]
  - PLATELET COUNT INCREASED [None]
  - PYREXIA [None]
  - RESPIRATORY RATE INCREASED [None]
  - SUDDEN DEATH [None]
  - WHITE BLOOD CELL COUNT DECREASED [None]
